FAERS Safety Report 12974242 (Version 1)
Quarter: 2016Q4

REPORT INFORMATION
  Report Type: Spontaneous
  Country: FR (occurrence: FR)
  Receive Date: 20161125
  Receipt Date: 20161125
  Transmission Date: 20170207
  Serious: Yes (Hospitalization)
  Sender: FDA-Public Use
  Company Number: FR-ASTRAZENECA-2016SF23614

PATIENT
  Age: 29299 Day
  Sex: Female

DRUGS (8)
  1. ASPEGIC [Suspect]
     Active Substance: ASPIRIN DL-LYSINE
     Route: 048
  2. DOLIPRANE [Suspect]
     Active Substance: ACETAMINOPHEN
     Indication: PAIN
     Route: 048
  3. LASILIX [Suspect]
     Active Substance: FUROSEMIDE
     Route: 048
  4. ATACAND [Suspect]
     Active Substance: CANDESARTAN CILEXETIL
     Route: 048
  5. TAHOR [Suspect]
     Active Substance: ATORVASTATIN CALCIUM
     Indication: DYSLIPIDAEMIA
     Route: 048
  6. INEXIUM [Suspect]
     Active Substance: ESOMEPRAZOLE
     Route: 048
  7. BISOPROLOL [Suspect]
     Active Substance: BISOPROLOL
     Route: 048
  8. LOXEN [Suspect]
     Active Substance: NICARDIPINE HYDROCHLORIDE
     Route: 048

REACTIONS (3)
  - Pancytopenia [Unknown]
  - Acute cutaneous lupus erythematosus [Recovered/Resolved]
  - Low density lipoprotein increased [Unknown]

NARRATIVE: CASE EVENT DATE: 20160922
